FAERS Safety Report 4815045-7 (Version None)
Quarter: 2005Q4

REPORT INFORMATION
  Report Type: 
  Country: None (occurrence: None)
  Receive Date: 20051026
  Receipt Date: 20051012
  Transmission Date: 20060501
  Serious: Yes (Other)
  Sender: FDA-Public Use
  Company Number: JP_051007840

PATIENT
  Age: 49 Year
  Sex: Male

DRUGS (2)
  1. GEMZAR [Suspect]
     Indication: PANCREATIC CARCINOMA
     Dosage: 1 G/M2 OTHER
     Route: 042
     Dates: start: 20030827, end: 20040817
  2. TEGAFUR [Concomitant]

REACTIONS (3)
  - ANOREXIA [None]
  - MALAISE [None]
  - PANCREATIC ATROPHY [None]
